FAERS Safety Report 10098103 (Version 1)
Quarter: 2014Q2

REPORT INFORMATION
  Report Type: Spontaneous
  Country: IT (occurrence: None)
  Receive Date: 20140421
  Receipt Date: 20140421
  Transmission Date: 20141212
  Serious: Yes (Other)
  Sender: FDA-Public Use
  Company Number: AUR-APL-2014-04705

PATIENT
  Age: 73 Year
  Sex: Male

DRUGS (2)
  1. TAMSULOSIN (TAMSULOSIN) [Suspect]
     Indication: PRODUCT USED FOR UNKNOWN INDICATION
     Dates: start: 20130601, end: 20140316
  2. NEO-LOTAN [Suspect]
     Indication: PRODUCT USED FOR UNKNOWN INDICATION
     Dates: start: 20130601, end: 20140316

REACTIONS (1)
  - Presyncope [None]
